FAERS Safety Report 5219356-5 (Version None)
Quarter: 2007Q1

REPORT INFORMATION
  Report Type: 
  Country: None (occurrence: None)
  Receive Date: 20070125
  Receipt Date: 20070111
  Transmission Date: 20070707
  Serious: Yes (Hospitalization)
  Sender: FDA-Public Use
  Company Number: FR-ELI_LILLY_AND_COMPANY-FR_030302222

PATIENT
  Age: 59 Year
  Sex: Female

DRUGS (10)
  1. PROZAC [Suspect]
  2. TRANXENE [Concomitant]
     Dosage: 50 MG, 3/D
     Route: 048
     Dates: end: 20030303
  3. DAONIL                                  /USA/ [Concomitant]
     Dosage: 5 MG, 2/D
     Route: 048
     Dates: end: 20030303
  4. SERESTA                                 /NET/ [Concomitant]
     Dosage: 50 MG, 3/D
     Route: 048
     Dates: end: 20030303
  5. ACARBOSE [Concomitant]
     Dosage: 100 MG, 3/D
     Route: 048
     Dates: end: 20030303
  6. ZOLPIDEM TARTRATE [Concomitant]
     Dosage: 1 D/F, DAILY (1/D)
     Route: 065
  7. THERALENE [Concomitant]
     Dosage: 50 UNK, DAILY (1/D)
     Route: 048
  8. HAVLANE [Concomitant]
     Dosage: 1 D/F, DAILY (1/D)
     Route: 065
  9. TERCIAN [Concomitant]
     Dosage: 1 D/F, DAILY (1/D)
     Route: 065
  10. GLUCOPHAGE [Concomitant]
     Indication: DIABETES MELLITUS
     Dosage: 850 U, 3/D
     Route: 065

REACTIONS (5)
  - AMNESIA [None]
  - DISORIENTATION [None]
  - RHABDOMYOLYSIS [None]
  - SYNCOPE [None]
  - URINARY INCONTINENCE [None]
